FAERS Safety Report 8622607-8 (Version None)
Quarter: 2012Q3

REPORT INFORMATION
  Report Type: 
  Country: None (occurrence: None)
  Receive Date: 20120827
  Receipt Date: 20120813
  Transmission Date: 20120928
  Serious: No
  Sender: FDA-Public Use
  Company Number: US-B.I. PHARMACEUTICALS,INC./RIDGEFIELD-2012-BP-19045BP

PATIENT
  Sex: Male

DRUGS (4)
  1. ASPIRIN [Concomitant]
     Indication: PROPHYLAXIS
     Dosage: 81 MG
     Route: 048
  2. GLUCOSAMINE [Concomitant]
     Indication: ARTHRALGIA
     Route: 048
  3. COMBIVENT [Suspect]
     Indication: PULMONARY CONGESTION
     Dosage: 6 PUF
     Route: 055
     Dates: start: 20120726, end: 20120810
  4. LIPITOR [Concomitant]
     Indication: BLOOD CHOLESTEROL INCREASED
     Route: 048

REACTIONS (3)
  - PULMONARY CONGESTION [None]
  - DYSPNOEA [None]
  - DRUG INEFFECTIVE [None]
